FAERS Safety Report 8834098 (Version 1)
Quarter: 2012Q4

REPORT INFORMATION
  Report Type: 
  Country: US (occurrence: US)
  Receive Date: 20121010
  Receipt Date: 20121010
  Transmission Date: 20130627
  Serious: Yes (Other)
  Sender: FDA-Public Use
  Company Number: PHEH2012US019792

PATIENT
  Age: 52 Year
  Sex: Female

DRUGS (3)
  1. GILENYA [Suspect]
     Indication: MULTIPLE SCLEROSIS
     Dosage: 0.5 mg, QD
     Route: 048
     Dates: start: 20120830
  2. NEURONTIN [Concomitant]
  3. ACYCLOVIR [Concomitant]

REACTIONS (1)
  - Gingival abscess [Not Recovered/Not Resolved]
